FAERS Safety Report 6707214-6 (Version None)
Quarter: 2010Q2

REPORT INFORMATION
  Report Type: 
  Country: None (occurrence: None)
  Receive Date: 20100503
  Receipt Date: 20090324
  Transmission Date: 20101027
  Serious: No
  Sender: FDA-Public Use
  Company Number: US-ASTRAZENECA-2009UW07535

PATIENT
  Age: 916 Month
  Sex: Female

DRUGS (4)
  1. NEXIUM [Suspect]
     Indication: PROPHYLAXIS AGAINST GASTROINTESTINAL ULCER
     Route: 048
     Dates: start: 20070701
  2. NEXIUM [Suspect]
     Route: 048
     Dates: start: 20070201, end: 20070701
  3. NIASPAN [Concomitant]
  4. ASPIRIN [Concomitant]

REACTIONS (2)
  - NEPHROLITHIASIS [None]
  - OSTEOPOROSIS [None]
